FAERS Safety Report 5198409-4 (Version None)
Quarter: 2006Q4

REPORT INFORMATION
  Report Type: 
  Country: None (occurrence: None)
  Receive Date: 20061229
  Receipt Date: 20061229
  Transmission Date: 20070319
  Serious: Yes (Other)
  Sender: FDA-Public Use
  Company Number: None

PATIENT
  Age: 68 Year
  Sex: Male
  Weight: 110.6777 kg

DRUGS (1)
  1. FLUCONAZOLE [Suspect]
     Dosage: 100 MG DAILY BUCCAL
     Route: 002

REACTIONS (2)
  - PRURITUS [None]
  - RASH [None]
